FAERS Safety Report 9836270 (Version 1)
Quarter: 2014Q1

REPORT INFORMATION
  Report Type: Report from Study
  Country: GR (occurrence: GR)
  Receive Date: 20140123
  Receipt Date: 20140123
  Transmission Date: 20141002
  Serious: Yes (Death, Other)
  Sender: FDA-Public Use
  Company Number: GR-ROCHE-1334816

PATIENT
  Age: 76 Year
  Sex: Male

DRUGS (5)
  1. BEVACIZUMAB [Suspect]
     Indication: LUNG ADENOCARCINOMA
     Route: 042
     Dates: start: 20120625
  2. BEVACIZUMAB [Suspect]
     Route: 042
     Dates: start: 20121206, end: 20130114
  3. ERLOTINIB [Suspect]
     Indication: LUNG ADENOCARCINOMA
     Route: 048
     Dates: start: 20130214, end: 20130330
  4. CARBOPLATIN [Concomitant]
     Indication: NON-SMALL CELL LUNG CANCER
     Route: 042
     Dates: start: 20120625, end: 20121101
  5. PEMETREXED [Concomitant]
     Indication: NON-SMALL CELL LUNG CANCER
     Route: 042
     Dates: start: 20120625, end: 20121101

REACTIONS (8)
  - Death [Fatal]
  - Pancytopenia [Unknown]
  - Performance status decreased [Unknown]
  - Therapy responder [Unknown]
  - Decreased appetite [Unknown]
  - Catabolic state [Unknown]
  - Asthenia [Unknown]
  - Muscular weakness [Unknown]
